FAERS Safety Report 4916478-0 (Version None)
Quarter: 2006Q1

REPORT INFORMATION
  Report Type: 
  Country: None (occurrence: None)
  Receive Date: 20060214
  Receipt Date: 20060203
  Transmission Date: 20060701
  Serious: Yes (Hospitalization)
  Sender: FDA-Public Use
  Company Number: 2006018442

PATIENT
  Age: 16 Year
  Sex: Female

DRUGS (3)
  1. ZOLOFT [Suspect]
     Indication: AUTISM
     Dosage: 25 MG (50 MG, 1 IN 1 D), ORAL
     Route: 048
  2. ZOLOFT [Suspect]
     Indication: DEPRESSION
     Dosage: 25 MG (50 MG, 1 IN 1 D), ORAL
     Route: 048
  3. ZOLOFT [Suspect]
     Indication: PANIC DISORDER
     Dosage: 25 MG (50 MG, 1 IN 1 D), ORAL
     Route: 048

REACTIONS (1)
  - ILEUS [None]
